FAERS Safety Report 10064223 (Version 1)
Quarter: 2014Q2

REPORT INFORMATION
  Report Type: Spontaneous
  Country: DE (occurrence: None)
  Receive Date: 20140404
  Receipt Date: 20140404
  Transmission Date: 20141212
  Serious: Yes (Hospitalization)
  Sender: FDA-Public Use
  Company Number: FK201401176

PATIENT
  Age: 28 Year
  Sex: Male

DRUGS (3)
  1. CYTARABINE (MANUFACTURER UNKNOWN) (CYTARABINE) (CYTARABINE) [Suspect]
     Indication: ACUTE MYELOID LEUKAEMIA
  2. DAUNORUBICIN [Suspect]
     Indication: ACUTE MYELOID LEUKAEMIA
  3. CORTISONE [Suspect]
     Indication: ACUTE MYELOID LEUKAEMIA

REACTIONS (4)
  - Osteonecrosis [None]
  - Osteonecrosis [None]
  - Musculoskeletal pain [None]
  - Osteolysis [None]
